FAERS Safety Report 7574881-7 (Version None)
Quarter: 2011Q2

REPORT INFORMATION
  Report Type: 
  Country: None (occurrence: None)
  Receive Date: 20110627
  Receipt Date: 20110617
  Transmission Date: 20111010
  Serious: Yes (Hospitalization)
  Sender: FDA-Public Use
  Company Number: FR-ASTRAZENECA-2011SE37041

PATIENT
  Age: 33815 Day
  Sex: Female

DRUGS (9)
  1. MORPHINE SULFATE [Suspect]
     Indication: VERTEBRAL WEDGING
     Route: 048
     Dates: start: 20110513
  2. DILTIAZEM HCL [Suspect]
     Indication: ARRHYTHMIA
     Route: 048
     Dates: start: 20110521
  3. LOVENOX [Suspect]
     Indication: DEEP VEIN THROMBOSIS
     Route: 058
     Dates: start: 20110513
  4. ASPIRIN [Suspect]
     Route: 048
  5. NEXIUM [Suspect]
     Indication: GASTRITIS
     Route: 048
     Dates: start: 20110531
  6. CACIT VITAMIN D3 [Suspect]
     Indication: OSTEOPOROSIS
     Route: 048
     Dates: start: 20110520
  7. PLAVIX [Suspect]
     Route: 048
     Dates: start: 20110519, end: 20110606
  8. UVEDOSE [Suspect]
     Route: 048
     Dates: start: 20110603
  9. ACETAMINOPHEN [Suspect]
     Indication: VERTEBRAL WEDGING
     Route: 048
     Dates: start: 20110513

REACTIONS (1)
  - VASCULAR PURPURA [None]
